FAERS Safety Report 25903524 (Version 1)
Quarter: 2025Q4

REPORT INFORMATION
  Report Type: Spontaneous
  Country: US (occurrence: US)
  Receive Date: 20251009
  Receipt Date: 20251009
  Transmission Date: 20260117
  Serious: Yes (Other)
  Sender: SANDOZ
  Company Number: US-SANDOZ-SDZ2025US072437

PATIENT
  Age: 73 Year
  Sex: Female

DRUGS (1)
  1. RECLAST [Suspect]
     Active Substance: ZOLEDRONIC ACID
     Indication: Product used for unknown indication
     Dosage: UNK
     Route: 065
     Dates: start: 20250925

REACTIONS (10)
  - Blood pressure decreased [Recovered/Resolved]
  - Wheezing [Unknown]
  - Influenza like illness [Recovering/Resolving]
  - Dyspnoea [Unknown]
  - Arthralgia [Unknown]
  - Vomiting [Unknown]
  - Pyrexia [Unknown]
  - Decreased appetite [Unknown]
  - Nausea [Unknown]
  - Headache [Recovering/Resolving]

NARRATIVE: CASE EVENT DATE: 20250901
